FAERS Safety Report 18028520 (Version 1)
Quarter: 2020Q3

REPORT INFORMATION
  Report Type: Spontaneous
  Country: US (occurrence: US)
  Receive Date: 20200715
  Receipt Date: 20200715
  Transmission Date: 20201103
  Serious: No
  Sender: FDA-Public Use
  Company Number: US-TEVA-2020-US-1800884

PATIENT
  Sex: Female

DRUGS (3)
  1. TORSEMIDE. [Suspect]
     Active Substance: TORSEMIDE
     Indication: WEIGHT CONTROL
     Route: 065
  2. VYNDAQEL [Suspect]
     Active Substance: TAFAMIDIS MEGLUMINE
     Route: 065
  3. VYNDAMAX [Suspect]
     Active Substance: TAFAMIDIS

REACTIONS (1)
  - Weight increased [Unknown]
